FAERS Safety Report 8418945-4 (Version None)
Quarter: 2012Q2

REPORT INFORMATION
  Report Type: 
  Country: None (occurrence: None)
  Receive Date: 20120607
  Receipt Date: 20120530
  Transmission Date: 20120825
  Serious: Yes (Other)
  Sender: FDA-Public Use
  Company Number: PHHY2012DE047219

PATIENT
  Sex: Male

DRUGS (3)
  1. CELLCEPT [Concomitant]
     Indication: PROPHYLAXIS AGAINST TRANSPLANT REJECTION
     Route: 048
  2. CLOPIDOGREL [Concomitant]
     Route: 048
     Dates: end: 20120501
  3. CERTICAN [Suspect]
     Indication: PROPHYLAXIS AGAINST TRANSPLANT REJECTION
     Dosage: 0.5 MG
     Route: 048
     Dates: end: 20120501

REACTIONS (7)
  - PHARYNGEAL HAEMORRHAGE [None]
  - PNEUMOCYSTIS JIROVECI INFECTION [None]
  - PULMONARY HAEMORRHAGE [None]
  - DYSPNOEA [None]
  - PYREXIA [None]
  - THROMBOCYTOPENIA [None]
  - SKIN HAEMORRHAGE [None]
